FAERS Safety Report 7964413-3 (Version None)
Quarter: 2011Q4

REPORT INFORMATION
  Report Type: 
  Country: None (occurrence: None)
  Receive Date: 20111208
  Receipt Date: 20111117
  Transmission Date: 20120403
  Serious: Yes (Other)
  Sender: FDA-Public Use
  Company Number: US-SANOFI-AVENTIS-2010SA070434

PATIENT
  Sex: Male

DRUGS (2)
  1. NOVOLOG [Suspect]
     Dosage: DOSE:4 UNIT(S)
     Dates: start: 20100518
  2. LANTUS [Suspect]
     Dosage: DOSE:8 UNIT(S)
     Route: 058

REACTIONS (3)
  - BLOOD GLUCOSE INCREASED [None]
  - BLOOD GLUCOSE DECREASED [None]
  - LOSS OF CONSCIOUSNESS [None]
